FAERS Safety Report 5915348-9 (Version None)
Quarter: 2008Q4

REPORT INFORMATION
  Report Type: 
  Country: None (occurrence: None)
  Receive Date: 20081010
  Receipt Date: 20081007
  Transmission Date: 20090506
  Serious: Yes (Death)
  Sender: FDA-Public Use
  Company Number: CN-ROCHE-590142

PATIENT
  Age: 89 Year
  Sex: Male

DRUGS (3)
  1. ROCEPHIN [Suspect]
     Indication: LUNG INFECTION
     Route: 042
     Dates: start: 20080826, end: 20080826
  2. CEFOTAXIME SODIUM [Suspect]
     Indication: LUNG INFECTION
     Route: 041
     Dates: start: 20080822, end: 20080825
  3. MANNITOL [Concomitant]
     Indication: CEREBRAL INFARCTION

REACTIONS (5)
  - CARDIAC FAILURE [None]
  - CEREBRAL INFARCTION [None]
  - LUNG INFECTION [None]
  - PLATELET COUNT DECREASED [None]
  - RESPIRATORY FAILURE [None]
